FAERS Safety Report 10552575 (Version 1)
Quarter: 2014Q4

REPORT INFORMATION
  Report Type: Spontaneous
  Country: IT (occurrence: IT)
  Receive Date: 20141029
  Receipt Date: 20141029
  Transmission Date: 20150529
  Serious: Yes (Hospitalization)
  Sender: FDA-Public Use
  Company Number: IT-ELI_LILLY_AND_COMPANY-IT201410009155

PATIENT
  Age: 70 Year
  Sex: Male

DRUGS (4)
  1. ALOXI [Concomitant]
     Active Substance: PALONOSETRON HYDROCHLORIDE
     Dosage: 250 UG, SINGLE
     Route: 040
     Dates: start: 20141015, end: 20141015
  2. ALIMTA [Suspect]
     Active Substance: PEMETREXED DISODIUM
     Indication: MESOTHELIOMA MALIGNANT
     Dosage: 850 MG, SINGLE
     Route: 042
     Dates: start: 20141015, end: 20141015
  3. APREPITANT. [Concomitant]
     Active Substance: APREPITANT
     Dosage: 125 MG, SINGLE
     Route: 048
     Dates: start: 20141015, end: 20141015
  4. SOLDESAM [Concomitant]
     Active Substance: DEXAMETHASONE
     Dosage: 12 MG, SINGLE
     Route: 042
     Dates: start: 20141015, end: 20141015

REACTIONS (3)
  - Headache [Recovering/Resolving]
  - Discomfort [Recovering/Resolving]
  - Eye oedema [Recovering/Resolving]

NARRATIVE: CASE EVENT DATE: 20141015
